FAERS Safety Report 7907003-0 (Version None)
Quarter: 2011Q4

REPORT INFORMATION
  Report Type: 
  Country: None (occurrence: None)
  Receive Date: 20111110
  Receipt Date: 20111104
  Transmission Date: 20120403
  Serious: Yes (Death, Hospitalization, Other)
  Sender: FDA-Public Use
  Company Number: BE-PFIZER INC-2005125965

PATIENT
  Age: 73 Year
  Sex: Male
  Weight: 56 kg

DRUGS (11)
  1. CARMELLOSE SODIUM [Concomitant]
     Dosage: UNK
     Dates: start: 20050701
  2. MORPHINE [Concomitant]
     Dosage: UNK
     Dates: start: 20050714
  3. MS CONTIN [Concomitant]
     Dosage: UNK
     Route: 048
     Dates: start: 20050714, end: 20050818
  4. ZOPICLONE [Concomitant]
     Dosage: UNK
     Dates: start: 20050427
  5. INDAPAMIDE [Concomitant]
     Dosage: UNK
     Route: 048
     Dates: start: 20050601, end: 20050817
  6. CALCIUM [Concomitant]
     Dosage: UNK
     Dates: start: 20040427
  7. VITAMIN D [Concomitant]
     Dosage: UNK
     Dates: start: 20040427
  8. SUNITINIB MALATE [Suspect]
     Indication: GASTROINTESTINAL STROMAL TUMOUR
     Dosage: 50 MG, 1X/DAY, 4 WEEKS ON, 2 WEEKS OFF
     Route: 048
     Dates: start: 20050609, end: 20050817
  9. SUNITINIB MALATE [Suspect]
     Dosage: 37.5 MG, 1X/DAY
     Dates: start: 20050908, end: 20050909
  10. MOVIPREP [Concomitant]
     Dosage: UNK
     Dates: start: 20050413
  11. HEXTRIL [Concomitant]
     Dosage: UNK
     Dates: start: 20050620

REACTIONS (3)
  - BRONCHOPULMONARY ASPERGILLOSIS [None]
  - GENERAL PHYSICAL HEALTH DETERIORATION [None]
  - DEPRESSED LEVEL OF CONSCIOUSNESS [None]
